FAERS Safety Report 10165512 (Version 2)
Quarter: 2014Q2

REPORT INFORMATION
  Report Type: Spontaneous
  Country: US (occurrence: US)
  Receive Date: 20140510
  Receipt Date: 20140510
  Transmission Date: 20141212
  Serious: No
  Sender: FDA-Public Use
  Company Number: US-BRISTOL-MYERS SQUIBB COMPANY-19841436

PATIENT
  Age: 78 Year
  Sex: Male
  Weight: 126.98 kg

DRUGS (3)
  1. BYDUREON [Suspect]
     Indication: TYPE 2 DIABETES MELLITUS
     Dosage: PRESCRIPTION #298935301013
  2. LEVEMIR [Concomitant]
  3. INSULIN [Concomitant]
     Dosage: 1DF:30 UNITS
     Route: 058

REACTIONS (5)
  - Injection site mass [Not Recovered/Not Resolved]
  - Injection site pain [Recovered/Resolved]
  - Injection site haemorrhage [Recovered/Resolved]
  - Product quality issue [Unknown]
  - Underdose [Unknown]
